FAERS Safety Report 8185602-1 (Version None)
Quarter: 2012Q1

REPORT INFORMATION
  Report Type: 
  Country: None (occurrence: None)
  Receive Date: 20120305
  Receipt Date: 20120223
  Transmission Date: 20120608
  Serious: Yes (Hospitalization, Other)
  Sender: FDA-Public Use
  Company Number: US-BAXTER-2012BH004501

PATIENT
  Age: 49 Year
  Sex: Female

DRUGS (4)
  1. DIANEAL [Suspect]
     Indication: PERITONEAL DIALYSIS
     Route: 033
     Dates: end: 20120101
  2. DIANEAL [Suspect]
     Route: 033
     Dates: start: 20120208
  3. EXTRANEAL [Suspect]
     Indication: PERITONEAL DIALYSIS
     Route: 033
     Dates: end: 20120101
  4. EXTRANEAL [Suspect]
     Route: 033
     Dates: start: 20120208

REACTIONS (4)
  - NAUSEA [None]
  - BENIGN GASTRIC NEOPLASM [None]
  - ABDOMINAL PAIN [None]
  - VOMITING [None]
